FAERS Safety Report 8226095-5 (Version None)
Quarter: 2012Q1

REPORT INFORMATION
  Report Type: 
  Country: None (occurrence: None)
  Receive Date: 20120321
  Receipt Date: 20120313
  Transmission Date: 20120608
  Serious: Yes (Life-Threatening, Hospitalization)
  Sender: FDA-Public Use
  Company Number: JP-AMGEN-JPNCT2011037043

PATIENT
  Age: 79 Year
  Sex: Female
  Weight: 40 kg

DRUGS (7)
  1. PANITUMUMAB [Suspect]
     Indication: COLORECTAL CANCER
     Dosage: 250 MG, Q2WK
     Route: 041
     Dates: start: 20110601, end: 20110601
  2. LEVOFOLINATE [Concomitant]
     Indication: COLORECTAL CANCER
     Dosage: 250 MG, Q2WK
     Route: 041
     Dates: start: 20110601, end: 20110601
  3. OXALIPLATIN [Suspect]
     Indication: COLORECTAL CANCER
     Dosage: 100 MG, Q2WK
     Route: 041
     Dates: start: 20110601, end: 20110601
  4. FLUOROURACIL [Concomitant]
     Indication: COLORECTAL CANCER
     Dosage: 500 MG, Q2WK
     Route: 040
     Dates: start: 20110601, end: 20110601
  5. KYTRIL [Concomitant]
     Indication: PROPHYLAXIS OF NAUSEA AND VOMITING
     Dosage: 3 MG, QD
     Route: 042
     Dates: start: 20110601, end: 20110601
  6. FLUOROURACIL [Concomitant]
     Dosage: 3000 MG, Q2WK
     Route: 041
     Dates: start: 20110601, end: 20110603
  7. DEXAMETHASONE SODIUM PHOSPHATE [Concomitant]
     Indication: PROPHYLAXIS OF NAUSEA AND VOMITING
     Dosage: 3.3 MG, QD
     Route: 042
     Dates: start: 20110601, end: 20110601

REACTIONS (3)
  - CONVULSION [None]
  - VOMITING [None]
  - ALTERED STATE OF CONSCIOUSNESS [None]
